FAERS Safety Report 6176187-X (Version None)
Quarter: 2009Q2

REPORT INFORMATION
  Report Type: 
  Country: None (occurrence: None)
  Receive Date: 20090501
  Receipt Date: 20090414
  Transmission Date: 20091009
  Serious: Yes (Death, Hospitalization)
  Sender: FDA-Public Use
  Company Number: PE-PFIZER INC-2009190852

PATIENT
  Sex: Female

DRUGS (5)
  1. LYRICA [Suspect]
     Indication: NEURALGIA
     Dosage: 75 MG, 2X/DAY
     Dates: start: 20090212
  2. LYRICA [Suspect]
     Indication: DIABETIC NEUROPATHY
  3. ALL OTHER THERAPEUTIC PRODUCTS [Concomitant]
     Route: 054
  4. RANITIDINE [Concomitant]
  5. SUCRALFATE [Concomitant]

REACTIONS (1)
  - PNEUMONIA [None]
